FAERS Safety Report 19366761 (Version 1)
Quarter: 2021Q2

REPORT INFORMATION
  Report Type: Spontaneous
  Country: ES (occurrence: ES)
  Receive Date: 20210603
  Receipt Date: 20210603
  Transmission Date: 20210717
  Serious: Yes (Hospitalization)
  Sender: FDA-Public Use
  Company Number: ES-BAUSCH-BL-2021-016514

PATIENT
  Age: 45 Year
  Sex: Male

DRUGS (1)
  1. KYNTHEUM [Suspect]
     Active Substance: BRODALUMAB
     Indication: PSORIASIS
     Dosage: 210MG AT THE APPROVED DOSE
     Route: 058
     Dates: start: 20210325

REACTIONS (5)
  - Diplopia [Recovered/Resolved]
  - Visual acuity reduced [Recovered/Resolved]
  - Paranasal cyst [Not Recovered/Not Resolved]
  - Cellulitis orbital [Recovered/Resolved]
  - Bacterial infection [Unknown]

NARRATIVE: CASE EVENT DATE: 202103
